FAERS Safety Report 13742520 (Version 5)
Quarter: 2019Q3

REPORT INFORMATION
  Report Type: Report from Study
  Country: JP (occurrence: JP)
  Receive Date: 20170711
  Receipt Date: 20190830
  Transmission Date: 20191004
  Serious: Yes (Death, Hospitalization)
  Sender: FDA-Public Use
  Company Number: JP-ACTELION-A-CH2017-156137

PATIENT
  Age: 64 Year
  Sex: Male

DRUGS (10)
  1. ZOLPIDEM TARTRATE. [Concomitant]
     Active Substance: ZOLPIDEM TARTRATE
  2. CALONAL [Concomitant]
     Active Substance: ACETAMINOPHEN
  3. OXYGEN. [Concomitant]
     Active Substance: OXYGEN
  4. LASIX [Concomitant]
     Active Substance: FUROSEMIDE
  5. PREDONINE [Concomitant]
     Active Substance: PREDNISOLONE
     Dosage: UNK
     Dates: start: 20170502, end: 20170506
  6. PREDONINE [Concomitant]
     Active Substance: PREDNISOLONE
     Indication: COMBINED PULMONARY FIBROSIS AND EMPHYSEMA
     Dosage: UNK
  7. ADCIRCA [Concomitant]
     Active Substance: TADALAFIL
  8. LANSOPRAZOLE. [Concomitant]
     Active Substance: LANSOPRAZOLE
  9. OPSUMIT [Suspect]
     Active Substance: MACITENTAN
     Indication: PULMONARY ARTERIAL HYPERTENSION
     Dosage: 10 MG, QD
     Route: 048
     Dates: start: 20170424, end: 20170508
  10. WARFARIN [Concomitant]
     Active Substance: WARFARIN

REACTIONS (2)
  - Combined pulmonary fibrosis and emphysema [Fatal]
  - Interstitial lung disease [Fatal]

NARRATIVE: CASE EVENT DATE: 20170502
